FAERS Safety Report 5397163-0 (Version None)
Quarter: 2007Q3

REPORT INFORMATION
  Report Type: 
  Country: None (occurrence: None)
  Receive Date: 20070725
  Receipt Date: 20070716
  Transmission Date: 20080115
  Serious: Yes (Other)
  Sender: FDA-Public Use
  Company Number: GB-PFIZER INC-2007046384

PATIENT
  Sex: Female
  Weight: 62 kg

DRUGS (8)
  1. DIFLUCAN [Suspect]
     Indication: FUNGAL INFECTION
     Route: 048
     Dates: start: 20070426, end: 20070518
  2. DIFLUCAN [Suspect]
     Indication: GLOSSITIS
  3. PREDNISOLONE [Concomitant]
     Route: 048
  4. ALENDRONIC ACID [Concomitant]
     Route: 048
  5. DIGOXIN [Concomitant]
     Route: 048
  6. SALBUTAMOL [Concomitant]
     Route: 055
  7. ALL OTHER THERAPEUTIC PRODUCTS [Concomitant]
     Route: 055
  8. ATROVENT [Concomitant]
     Route: 055

REACTIONS (6)
  - ALLERGY TO CHEMICALS [None]
  - ASTHMA [None]
  - BRONCHOSPASM [None]
  - HYPOKALAEMIA [None]
  - OEDEMA PERIPHERAL [None]
  - SKIN LACERATION [None]
